FAERS Safety Report 5692129-5 (Version None)
Quarter: 2008Q2

REPORT INFORMATION
  Report Type: 
  Country: None (occurrence: None)
  Receive Date: 20080328
  Receipt Date: 20070425
  Transmission Date: 20081010
  Serious: Yes (Other)
  Sender: FDA-Public Use
  Company Number: 07-000944

PATIENT
  Age: 66 Year
  Sex: Female

DRUGS (2)
  1. ESTRACE [Suspect]
     Indication: VULVOVAGINAL DRYNESS
     Dosage: 0.01%, 1/2-3/4GRAMS, QD, VAGINAL
     Route: 067
     Dates: start: 20050101, end: 20070426
  2. ARIMIDEX [Concomitant]

REACTIONS (2)
  - BREAST CANCER [None]
  - OESTRADIOL INCREASED [None]
